FAERS Safety Report 23513899 (Version 1)
Quarter: 2024Q1

REPORT INFORMATION
  Report Type: Spontaneous
  Country: US (occurrence: None)
  Receive Date: 20240211
  Receipt Date: 20240211
  Transmission Date: 20240410
  Serious: No
  Sender: FDA-Public Use
  Company Number: None

PATIENT
  Sex: Female

DRUGS (1)
  1. JAYPIRCA [Suspect]
     Active Substance: PIRTOBRUTINIB
     Indication: Chronic lymphocytic leukaemia

REACTIONS (9)
  - Alopecia [None]
  - Neck mass [None]
  - Nonspecific reaction [None]
  - Contusion [None]
  - Pain [None]
  - Psychiatric symptom [None]
  - Depression [None]
  - Weight decreased [None]
  - Therapy interrupted [None]
